FAERS Safety Report 9063672 (Version 1)
Quarter: 2013Q1

REPORT INFORMATION
  Report Type: Report from Study
  Country: US (occurrence: US)
  Receive Date: 20130129
  Receipt Date: 20130129
  Transmission Date: 20140127
  Serious: No
  Sender: FDA-Public Use
  Company Number: US-ABBOTT-12P-163-0947334-00

PATIENT
  Age: 54 Year
  Sex: Female

DRUGS (7)
  1. HUMIRA 40 MG/0.8 ML PEN [Suspect]
     Indication: PSORIASIS
     Dates: start: 20120529, end: 20120529
  2. HUMIRA 40 MG/0.8 ML PEN [Suspect]
     Dates: start: 20120605, end: 20120605
  3. HUMIRA 40 MG/0.8 ML PEN [Suspect]
  4. SYNTHROID [Concomitant]
     Indication: HYPOTHYROIDISM
     Dosage: 50MCG ONCE DAILY FOR 4 YEARS
     Route: 048
  5. PREMARIN [Concomitant]
     Indication: HOT FLUSH
     Dosage: 0.625MG ONCE DAILY FOR 1.5 YEARS
     Route: 048
  6. PREMARIN [Concomitant]
     Indication: MENOPAUSAL SYMPTOMS
  7. TRICOR [Concomitant]
     Indication: BLOOD TRIGLYCERIDES
     Dosage: 48MG ONCE DAILY
     Route: 048

REACTIONS (1)
  - Injection site pain [Recovered/Resolved]
